FAERS Safety Report 9785453 (Version 1)
Quarter: 2013Q4

REPORT INFORMATION
  Report Type: Spontaneous
  Country: US (occurrence: US)
  Receive Date: 20131227
  Receipt Date: 20131227
  Transmission Date: 20140711
  Serious: Yes (Other)
  Sender: FDA-Public Use
  Company Number: US-MYLANLABS-2013S1015260

PATIENT
  Sex: Female

DRUGS (1)
  1. LEVETIRACETAM TABLETS [Suspect]

REACTIONS (1)
  - Convulsion [Not Recovered/Not Resolved]
